FAERS Safety Report 9734726 (Version 1)
Quarter: 2013Q4

REPORT INFORMATION
  Report Type: Spontaneous
  Country: IT (occurrence: IT)
  Receive Date: 20131206
  Receipt Date: 20131206
  Transmission Date: 20140711
  Serious: Yes (Hospitalization)
  Sender: FDA-Public Use
  Company Number: IT-ACCORD-020580

PATIENT
  Age: 44 Year
  Sex: Male
  Weight: 70 kg

DRUGS (3)
  1. TACROLIMUS [Suspect]
     Indication: GLOMERULONEPHRITIS MEMBRANOPROLIFERATIVE
     Route: 048
     Dates: start: 20030129, end: 20131118
  2. SOLIRIS [Suspect]
     Indication: SALVAGE THERAPY
     Dosage: COMPASSIONATE USE
     Route: 042
     Dates: start: 20120720, end: 20130607
  3. METHYLPREDNISOLONE [Concomitant]
     Indication: PROPHYLAXIS AGAINST TRANSPLANT REJECTION
     Dates: start: 20030129, end: 20131118

REACTIONS (3)
  - Bacterial diarrhoea [Not Recovered/Not Resolved]
  - Septic arthritis streptococcal [Not Recovered/Not Resolved]
  - Off label use [Unknown]
